FAERS Safety Report 6816106-3 (Version None)
Quarter: 2010Q3

REPORT INFORMATION
  Report Type: 
  Country: None (occurrence: None)
  Receive Date: 20100702
  Receipt Date: 20100702
  Transmission Date: 20110219
  Serious: No
  Sender: FDA-Public Use
  Company Number: None

PATIENT
  Age: 33 Year
  Sex: Male
  Weight: 111.1 kg

DRUGS (1)
  1. DOXYCYCLINE [Suspect]
     Indication: EPIDIDYMITIS
     Dosage: 100 MG BID PO
     Route: 048
     Dates: start: 20100609, end: 20100616

REACTIONS (4)
  - ARTHRALGIA [None]
  - DYSPNOEA [None]
  - PRURITUS [None]
  - SWELLING [None]
